FAERS Safety Report 11056314 (Version 1)
Quarter: 2015Q2

REPORT INFORMATION
  Report Type: Other
  Country: GB (occurrence: GB)
  Receive Date: 20150422
  Receipt Date: 20150422
  Transmission Date: 20150821
  Serious: Yes (Hospitalization)
  Sender: FDA-Public Use
  Company Number: GB-MYLANLABS-2015M1011553

PATIENT

DRUGS (2)
  1. METFORMIN [Suspect]
     Active Substance: METFORMIN HYDROCHLORIDE
     Indication: FOETAL EXPOSURE TIMING UNSPECIFIED
     Dosage: UNK, TID (STRENGTH: 500 MG)
     Route: 064
  2. LANTUS [Suspect]
     Active Substance: INSULIN GLARGINE
     Indication: FOETAL EXPOSURE TIMING UNSPECIFIED
     Dosage: UNK (DOSE: 4 IU THEN INCREASED TO ROUGHLY 16 IU, POSSIBLY HIGHER)
     Route: 064
     Dates: start: 2009

REACTIONS (2)
  - Foetal exposure during pregnancy [Unknown]
  - Hypoglycaemia [Unknown]
